FAERS Safety Report 7738037-7 (Version None)
Quarter: 2011Q3

REPORT INFORMATION
  Report Type: 
  Country: None (occurrence: None)
  Receive Date: 20110908
  Receipt Date: 20110824
  Transmission Date: 20111222
  Serious: No
  Sender: FDA-Public Use
  Company Number: US-B.I. PHARMACEUTICALS,INC./RIDGEFIELD-2011-BP-20753BP

PATIENT
  Age: 66 Year
  Sex: Female

DRUGS (17)
  1. ALBUTEROL SULFATE AUTOHALER [Concomitant]
     Indication: CHRONIC OBSTRUCTIVE PULMONARY DISEASE
     Dosage: 2 PUF
     Route: 055
  2. CELEBREX [Concomitant]
     Indication: ARTHRITIS
     Dosage: 200 MG
     Route: 048
  3. SYNTHROID [Concomitant]
     Indication: HYPOTHYROIDISM
     Dosage: 175 MG
     Route: 048
  4. PRILOSEC [Concomitant]
     Indication: GASTROOESOPHAGEAL REFLUX DISEASE
     Dosage: 40 MG
     Route: 048
  5. NIACIN [Concomitant]
     Indication: BLOOD CHOLESTEROL INCREASED
     Dosage: 1500 MG
     Route: 048
  6. CALCIUM CARBONATE [Concomitant]
     Indication: MINERAL SUPPLEMENTATION
     Dosage: 1200 MG
     Route: 048
  7. MULTI-VITAMIN [Concomitant]
     Route: 048
  8. PLAQUENIL [Concomitant]
     Indication: ARTHRITIS
     Dosage: 400 MG
     Route: 048
  9. PROAIR HFA [Concomitant]
     Indication: CHRONIC OBSTRUCTIVE PULMONARY DISEASE
     Dosage: 2 PUF
     Route: 055
  10. SENAKOT S [Concomitant]
     Indication: CONSTIPATION
     Route: 048
  11. SPIRIVA [Suspect]
     Indication: CHRONIC OBSTRUCTIVE PULMONARY DISEASE
     Dosage: 18 MCG
     Route: 055
     Dates: start: 20110601
  12. ALVESCO [Concomitant]
     Indication: CHRONIC OBSTRUCTIVE PULMONARY DISEASE
     Dosage: 4 PUF
     Route: 055
  13. VERAPAMIL [Concomitant]
     Indication: HYPERTENSION
     Dosage: 360 MG
     Route: 048
  14. STOOL SOFTENERS [Concomitant]
     Indication: CONSTIPATION
     Route: 048
  15. ORPHENADRINE CITRATE [Concomitant]
     Indication: MUSCLE SPASMS
     Dosage: 100 MG
     Route: 048
  16. SINGULAIR [Concomitant]
     Indication: CHRONIC OBSTRUCTIVE PULMONARY DISEASE
     Dosage: 10 MG
     Route: 048
  17. RHINOCORT [Concomitant]
     Indication: MULTIPLE ALLERGIES

REACTIONS (5)
  - CONDITION AGGRAVATED [None]
  - ORAL CANDIDIASIS [None]
  - RASH PAPULAR [None]
  - VAGINAL INFECTION [None]
  - TONGUE DISCOLOURATION [None]
